FAERS Safety Report 5140422-7 (Version None)
Quarter: 2006Q4

REPORT INFORMATION
  Report Type: 
  Country: None (occurrence: None)
  Receive Date: 20061031
  Receipt Date: 20061027
  Transmission Date: 20070319
  Serious: Yes (Other)
  Sender: FDA-Public Use
  Company Number: FR-BRISTOL-MYERS SQUIBB COMPANY-13559018

PATIENT
  Age: 71 Year
  Sex: Male

DRUGS (1)
  1. APROVEL [Suspect]
     Indication: HYPERTENSION
     Route: 048

REACTIONS (1)
  - RENAL CELL CARCINOMA STAGE UNSPECIFIED [None]
